FAERS Safety Report 26019520 (Version 1)
Quarter: 2025Q4

REPORT INFORMATION
  Report Type: Spontaneous
  Country: US (occurrence: None)
  Receive Date: 20251107
  Receipt Date: 20251107
  Transmission Date: 20260118
  Serious: Yes (Life-Threatening)
  Sender: FDA-CTU
  Company Number: None

PATIENT
  Age: 15 Year
  Sex: Male
  Weight: 112.5 kg

DRUGS (3)
  1. HYDROCODONE [Suspect]
     Active Substance: HYDROCODONE
  2. XANAX [Suspect]
     Active Substance: ALPRAZOLAM
  3. MORPHINE [Suspect]
     Active Substance: MORPHINE

REACTIONS (2)
  - Illness [None]
  - Adverse drug reaction [None]

NARRATIVE: CASE EVENT DATE: 20250818
